FAERS Safety Report 5005175-1 (Version None)
Quarter: 2006Q2

REPORT INFORMATION
  Report Type: 
  Country: None (occurrence: None)
  Receive Date: 20060518
  Receipt Date: 20060510
  Transmission Date: 20061013
  Serious: Yes (Other)
  Sender: FDA-Public Use
  Company Number: PHBS2006TR06990

PATIENT
  Age: 18 Year
  Sex: Male

DRUGS (2)
  1. MAPROTILINE HYDROCHLORIDE [Suspect]
     Indication: DEPRESSION
  2. MESORIDAZINE BESYLATE [Suspect]
     Indication: DEPRESSION

REACTIONS (1)
  - SUICIDE ATTEMPT [None]
